FAERS Safety Report 10521357 (Version 1)
Quarter: 2014Q4

REPORT INFORMATION
  Report Type: Spontaneous
  Country: US (occurrence: US)
  Receive Date: 20141016
  Receipt Date: 20141016
  Transmission Date: 20150528
  Serious: Yes (Other)
  Sender: FDA-Public Use
  Company Number: US-ACCORD-026469

PATIENT
  Age: 64 Year
  Sex: Female

DRUGS (2)
  1. CARBOPLATIN. [Suspect]
     Active Substance: CARBOPLATIN
     Indication: OVARIAN CANCER
     Dosage: EVERY THREE WEEKS FOR SIX CYCLES
  2. PACLITAXEL/PACLITAXEL LIPOSOME [Suspect]
     Active Substance: PACLITAXEL
     Indication: OVARIAN CANCER
     Dosage: EVERY THREE WEEKS FOR SIX CYCLES

REACTIONS (6)
  - Raynaud^s phenomenon [None]
  - Angioedema [None]
  - Gastrooesophageal reflux disease [None]
  - Systemic sclerosis [Recovering/Resolving]
  - Myositis [None]
  - Muscular weakness [None]
